FAERS Safety Report 9842645 (Version 2)
Quarter: 2014Q1

REPORT INFORMATION
  Report Type: Spontaneous
  Country: SZ (occurrence: CH)
  Receive Date: 20140124
  Receipt Date: 20140211
  Transmission Date: 20141002
  Serious: Yes (Death, Hospitalization)
  Sender: FDA-Public Use
  Company Number: SZ-CELGENEUS-151-21660-14012424

PATIENT
  Age: 74 Year
  Sex: Male

DRUGS (1)
  1. ABRAXANE [Suspect]
     Indication: PANCREATIC CARCINOMA
     Route: 041
     Dates: start: 201311

REACTIONS (1)
  - Pancreatic carcinoma [Fatal]
